FAERS Safety Report 8958407 (Version 1)
Quarter: 2012Q4

REPORT INFORMATION
  Report Type: Report from Study
  Country: DE (occurrence: DE)
  Receive Date: 20121210
  Receipt Date: 20121210
  Transmission Date: 20130627
  Serious: Yes (Life-Threatening)
  Sender: FDA-Public Use
  Company Number: DE-GLAXOSMITHKLINE-B0850725A

PATIENT
  Age: 72 Year
  Sex: Female
  Weight: 58 kg

DRUGS (2)
  1. TOPOTECAN HYDROCHLORIDE [Suspect]
     Indication: OVARIAN CANCER
     Dosage: 2.05MG per day
     Route: 042
     Dates: start: 20100503, end: 20100525
  2. BEVACIZUMAB [Suspect]
     Indication: OVARIAN CANCER
     Dosage: 876MG per day
     Route: 042
     Dates: start: 20100503, end: 20100525

REACTIONS (1)
  - Ileus [Recovered/Resolved]
